FAERS Safety Report 14232305 (Version 1)
Quarter: 2017Q4

REPORT INFORMATION
  Report Type: Report from Study
  Country: CN (occurrence: CN)
  Receive Date: 20171128
  Receipt Date: 20171128
  Transmission Date: 20180321
  Serious: Yes (Other)
  Sender: FDA-Public Use
  Company Number: CN-BAYER-2017-183444

PATIENT
  Sex: Female

DRUGS (2)
  1. STIVARGA [Suspect]
     Active Substance: REGORAFENIB
     Indication: COLORECTAL CANCER
     Dosage: 120 MG, QD
     Route: 048
     Dates: start: 20170922, end: 20171010
  2. HYPOTENSOR [Concomitant]

REACTIONS (12)
  - Pleural effusion [Recovering/Resolving]
  - Blood pressure systolic increased [Recovering/Resolving]
  - Anxiety [Unknown]
  - Ascites [Unknown]
  - Renal impairment [None]
  - Proteinuria [None]
  - Blood albumin decreased [Recovering/Resolving]
  - Oedema [None]
  - Weight decreased [None]
  - Judgement impaired [Unknown]
  - Hypertension [Recovering/Resolving]
  - Delusion [Unknown]

NARRATIVE: CASE EVENT DATE: 20170923
